FAERS Safety Report 23411766 (Version 3)
Quarter: 2024Q3

REPORT INFORMATION
  Report Type: Report from Study
  Country: CO (occurrence: CO)
  Receive Date: 20240117
  Receipt Date: 20240806
  Transmission Date: 20241016
  Serious: Yes (Other)
  Sender: ABBVIE
  Company Number: CO-ABBVIE-5591796

PATIENT
  Sex: Female

DRUGS (8)
  1. SKYRIZI [Suspect]
     Active Substance: RISANKIZUMAB-RZAA
     Indication: Psoriasis
     Dosage: FORM STRENGTH: 150 MILLIGRAM
     Route: 058
     Dates: start: 20220315, end: 20230821
  2. SKYRIZI [Suspect]
     Active Substance: RISANKIZUMAB-RZAA
     Dosage: FORM STRENGTH: 150 MILLIGRAM
     Route: 058
     Dates: start: 20240711
  3. CALCIUM [Concomitant]
     Active Substance: CALCIUM
     Indication: Product used for unknown indication
     Route: 048
     Dates: start: 202405
  4. CLOBESAN [Concomitant]
     Indication: Product used for unknown indication
     Route: 065
     Dates: start: 2024
  5. ENOXAPARIN SODIUM [Concomitant]
     Active Substance: ENOXAPARIN SODIUM
     Indication: Product used for unknown indication
     Route: 058
     Dates: start: 202405
  6. ACETAMINOPHEN [Concomitant]
     Active Substance: ACETAMINOPHEN
     Indication: Pain
     Route: 048
     Dates: start: 202405
  7. NAPROXEN [Concomitant]
     Active Substance: NAPROXEN
     Indication: Product used for unknown indication
     Route: 065
     Dates: start: 202405
  8. FERROUS SULFATE [Concomitant]
     Active Substance: FERROUS SULFATE
     Indication: Product used for unknown indication
     Dosage: 1 UNKNOWN
     Route: 065
     Dates: start: 202405

REACTIONS (7)
  - Haemorrhage in pregnancy [Recovered/Resolved]
  - Psoriasis [Not Recovered/Not Resolved]
  - Maternal exposure during pregnancy [Unknown]
  - Weight decreased [Unknown]
  - Normal newborn [Unknown]
  - Weight increased [Unknown]
  - Meconium abnormal [Unknown]

NARRATIVE: CASE EVENT DATE: 20230101
